FAERS Safety Report 11043615 (Version 2)
Quarter: 2015Q2

REPORT INFORMATION
  Report Type: Report from Study
  Country: JP (occurrence: JP)
  Receive Date: 20150417
  Receipt Date: 20150426
  Transmission Date: 20150821
  Serious: Yes (Hospitalization)
  Sender: FDA-Public Use
  Company Number: JP-AMGEN-JPNCT2015036550

PATIENT
  Age: 74 Year
  Sex: Female
  Weight: 43 kg

DRUGS (14)
  1. MOHRUS [Concomitant]
     Active Substance: KETOPROFEN
     Indication: RHEUMATOID ARTHRITIS
  2. PARIET [Concomitant]
     Active Substance: RABEPRAZOLE SODIUM
     Indication: PROPHYLAXIS
     Dosage: 10 MG, QD
     Route: 048
     Dates: start: 20140513
  3. MOHRUS [Concomitant]
     Active Substance: KETOPROFEN
     Indication: RHEUMATIC DISORDER
     Dosage: 20 MG, QD
     Route: 062
     Dates: start: 20111215
  4. FOLIAMIN [Concomitant]
     Active Substance: FOLIC ACID
     Indication: PROPHYLAXIS
     Dosage: 5 MG, QWK
     Route: 048
     Dates: start: 20110512
  5. AMBROXOL HYDROCHLORIDE [Concomitant]
     Active Substance: AMBROXOL HYDROCHLORIDE
     Indication: RESPIRATORY TRACT INFLAMMATION
     Dosage: 15 MG, TID
     Route: 048
     Dates: start: 20141020
  6. CELECOX [Concomitant]
     Active Substance: CELECOXIB
     Indication: RHEUMATIC DISORDER
     Dosage: 100 MG, AS NEEDED
     Route: 048
     Dates: start: 20140916
  7. CLEANAL [Concomitant]
     Active Substance: FUDOSTEINE
     Indication: RESPIRATORY TRACT INFLAMMATION
     Dosage: 400 MG, TID
     Route: 048
     Dates: start: 20141215
  8. DENOSUMAB [Suspect]
     Active Substance: DENOSUMAB
     Indication: RHEUMATOID ARTHRITIS
     Dosage: 60 MG, Q3M OR Q6M
     Route: 058
     Dates: start: 20140415
  9. RHEUMATREX [Concomitant]
     Active Substance: METHOTREXATE SODIUM
     Indication: RHEUMATIC DISORDER
     Dosage: 4 MG, QWK
     Route: 048
     Dates: start: 20141024
  10. DENOTAS [Concomitant]
     Active Substance: CALCIUM CARBONATE\CHOLECALCIFEROL\MAGNESIUM CARBONATE
     Indication: PROPHYLAXIS
     Dosage: 2 DF, QD
     Route: 048
     Dates: start: 20140325
  11. KETAS [Concomitant]
     Active Substance: IBUDILAST
     Indication: RESPIRATORY TRACT INFLAMMATION
     Dosage: 10 MG, BID
     Route: 048
     Dates: start: 20141215
  12. DENOTAS [Concomitant]
     Active Substance: CALCIUM CARBONATE\CHOLECALCIFEROL\MAGNESIUM CARBONATE
     Indication: VITAMIN SUPPLEMENTATION
  13. DENOTAS [Concomitant]
     Active Substance: CALCIUM CARBONATE\CHOLECALCIFEROL\MAGNESIUM CARBONATE
     Indication: MINERAL SUPPLEMENTATION
  14. ERYTHROCIN                         /00020904/ [Concomitant]
     Indication: RESPIRATORY TRACT INFLAMMATION
     Dosage: 200 MG, BID
     Route: 048
     Dates: start: 20140908

REACTIONS (1)
  - Loss of consciousness [Recovered/Resolved]

NARRATIVE: CASE EVENT DATE: 20150413
